FAERS Safety Report 9258034 (Version 2)
Quarter: 2013Q2

REPORT INFORMATION
  Report Type: Spontaneous
  Country: IT (occurrence: IT)
  Receive Date: 20130426
  Receipt Date: 20130516
  Transmission Date: 20140414
  Serious: Yes (Life-Threatening)
  Sender: FDA-Public Use
  Company Number: IT-BRISTOL-MYERS SQUIBB COMPANY-18802074

PATIENT
  Age: 73 Year
  Sex: Female

DRUGS (7)
  1. WARFARIN SODIUM [Suspect]
     Route: 048
     Dates: start: 20130104, end: 20130107
  2. ALLOPURINOL [Suspect]
     Route: 048
     Dates: start: 20121220, end: 20130122
  3. RAMIPRIL [Concomitant]
  4. METFORMIN HCL [Concomitant]
  5. FUROSEMIDE [Concomitant]
  6. PANTOPRAZOLE SODIUM [Concomitant]
  7. ATORVASTATIN CALCIUM [Concomitant]

REACTIONS (2)
  - Mouth haemorrhage [Recovered/Resolved]
  - Toxic epidermal necrolysis [Recovered/Resolved]
